FAERS Safety Report 6753038-3 (Version None)
Quarter: 2010Q2

REPORT INFORMATION
  Report Type: 
  Country: None (occurrence: None)
  Receive Date: 20100603
  Receipt Date: 20100526
  Transmission Date: 20101027
  Serious: Yes (Other)
  Sender: FDA-Public Use
  Company Number: US-ELI_LILLY_AND_COMPANY-US201005007272

PATIENT
  Sex: Female

DRUGS (3)
  1. HUMALOG [Suspect]
     Indication: DIABETES MELLITUS
     Dosage: UNK, AS NEEDED
     Dates: start: 20090101
  2. HUMALOG [Suspect]
  3. LEVEMIR [Concomitant]

REACTIONS (8)
  - BLOOD GLUCOSE INCREASED [None]
  - COELIAC DISEASE [None]
  - DECREASED APPETITE [None]
  - GASTRIC DILATATION [None]
  - INCORRECT DOSE ADMINISTERED [None]
  - MALABSORPTION [None]
  - RETINOPATHY [None]
  - SHOCK HYPOGLYCAEMIC [None]
